FAERS Safety Report 12606468 (Version 2)
Quarter: 2016Q3

REPORT INFORMATION
  Report Type: Spontaneous
  Country: TR (occurrence: TR)
  Receive Date: 20160729
  Receipt Date: 20160808
  Transmission Date: 20161109
  Serious: Yes (Other)
  Sender: FDA-Public Use
  Company Number: TR-ELI_LILLY_AND_COMPANY-TR201606009276

PATIENT
  Sex: Female

DRUGS (1)
  1. PROZAC [Suspect]
     Active Substance: FLUOXETINE HYDROCHLORIDE
     Indication: DEPRESSION
     Dosage: 20 MG, QD
     Dates: start: 201603, end: 2016

REACTIONS (6)
  - Syncope [Unknown]
  - Dizziness [Unknown]
  - Suicide attempt [Unknown]
  - Nervousness [Unknown]
  - Suicidal ideation [Unknown]
  - Fear [Unknown]

NARRATIVE: CASE EVENT DATE: 20160625
